FAERS Safety Report 7940805-3 (Version None)
Quarter: 2011Q4

REPORT INFORMATION
  Report Type: 
  Country: None (occurrence: None)
  Receive Date: 20111128
  Receipt Date: 20111121
  Transmission Date: 20120403
  Serious: Yes (Other)
  Sender: FDA-Public Use
  Company Number: US-PFIZER INC-2011284910

PATIENT
  Sex: Female

DRUGS (1)
  1. LYRICA [Suspect]
     Indication: FIBROMYALGIA
     Dosage: UNK
     Route: 048
     Dates: start: 20110101

REACTIONS (6)
  - OEDEMA PERIPHERAL [None]
  - EYE DISORDER [None]
  - SWELLING FACE [None]
  - SWOLLEN TONGUE [None]
  - EYE SWELLING [None]
  - VISION BLURRED [None]
